FAERS Safety Report 5217971-6 (Version None)
Quarter: 2007Q1

REPORT INFORMATION
  Report Type: 
  Country: None (occurrence: None)
  Receive Date: 20070124
  Receipt Date: 20070118
  Transmission Date: 20070707
  Serious: Yes (Death, Other)
  Sender: FDA-Public Use
  Company Number: PHRM2007FR00568

PATIENT
  Age: 76 Year
  Sex: Male

DRUGS (1)
  1. ACLASTA [Suspect]
     Indication: OSTEITIS DEFORMANS
     Dates: start: 20061226, end: 20061226

REACTIONS (4)
  - CHEST PAIN [None]
  - DEATH [None]
  - MALAISE [None]
  - NAUSEA [None]
